FAERS Safety Report 6722833-9 (Version None)
Quarter: 2010Q2

REPORT INFORMATION
  Report Type: 
  Country: None (occurrence: None)
  Receive Date: 20100512
  Receipt Date: 20100512
  Transmission Date: 20101027
  Serious: Yes (Hospitalization)
  Sender: FDA-Public Use
  Company Number: None

PATIENT
  Age: 39 Year
  Sex: Female
  Weight: 62.5964 kg

DRUGS (1)
  1. SULFAMETHOXAZOLE-TMP DS DOUBLE STRENGTH QUALITEST/QUALITEST [Suspect]
     Indication: SINUSITIS
     Dosage: 1 TABLET EVERY 12 HOURS PO
     Route: 048
     Dates: start: 20100505, end: 20100515

REACTIONS (10)
  - ABASIA [None]
  - ASTHENIA [None]
  - BACK PAIN [None]
  - CHILLS [None]
  - DIARRHOEA [None]
  - DYSSTASIA [None]
  - HEADACHE [None]
  - MUSCULOSKELETAL STIFFNESS [None]
  - NAUSEA [None]
  - NECK PAIN [None]
